FAERS Safety Report 24115422 (Version 1)
Quarter: 2024Q3

REPORT INFORMATION
  Report Type: Spontaneous
  Country: US (occurrence: US)
  Receive Date: 20240721
  Receipt Date: 20240721
  Transmission Date: 20241016
  Serious: No
  Sender: NOVO NORDISK
  Company Number: US-NOVOPROD-1213829

PATIENT
  Age: 54 Year
  Sex: Male

DRUGS (1)
  1. WEGOVY [Suspect]
     Active Substance: SEMAGLUTIDE
     Indication: Weight control
     Dosage: 1.7 MG, QW
     Route: 058
     Dates: start: 20230811

REACTIONS (6)
  - Injection site vesicles [Unknown]
  - Gastrointestinal disorder [Recovered/Resolved]
  - Injection site discharge [Not Recovered/Not Resolved]
  - Needle issue [Unknown]
  - Injection site pain [Unknown]
  - Food craving [Unknown]

NARRATIVE: CASE EVENT DATE: 20230801
